FAERS Safety Report 8168880-4 (Version None)
Quarter: 2012Q1

REPORT INFORMATION
  Report Type: 
  Country: None (occurrence: None)
  Receive Date: 20120227
  Receipt Date: 20120220
  Transmission Date: 20120608
  Serious: Yes (Hospitalization)
  Sender: FDA-Public Use
  Company Number: KR-ABBOTT-10P-090-0677494-00

PATIENT
  Age: 21 Year
  Sex: Female
  Weight: 56 kg

DRUGS (6)
  1. KALETRA [Suspect]
     Indication: HIV INFECTION
     Dates: start: 20100722, end: 20101008
  2. KALETRA [Suspect]
     Dosage: 2 TABS 2X/DAY
     Dates: start: 20101116
  3. LAMIVUDINE (EPIVIR HBV) [Concomitant]
     Indication: ANTIRETROVIRAL THERAPY
     Dosage: 300 MG/DAY
     Dates: start: 20101116
  4. ADACEL [Concomitant]
     Indication: IMMUNISATION
     Dosage: 0.5 MG
     Route: 048
     Dates: start: 20110526, end: 20110526
  5. ABC [Concomitant]
     Indication: ANTIRETROVIRAL THERAPY
     Dosage: 600 MG/DAY
     Dates: start: 20101116
  6. COMBIVIR [Suspect]
     Indication: ANTIRETROVIRAL THERAPY
     Dosage: 2 TABLETS DAILY
     Dates: start: 20100722, end: 20101008

REACTIONS (4)
  - NEUTROPENIA [None]
  - BONE MARROW FAILURE [None]
  - ANAEMIA [None]
  - HYPERTRIGLYCERIDAEMIA [None]
